FAERS Safety Report 5895646-8 (Version None)
Quarter: 2008Q3

REPORT INFORMATION
  Report Type: 
  Country: None (occurrence: None)
  Receive Date: 20080922
  Receipt Date: 20080911
  Transmission Date: 20090109
  Serious: Yes (Other)
  Sender: FDA-Public Use
  Company Number: 2008AP002375

PATIENT
  Age: 12 Year
  Sex: Male

DRUGS (4)
  1. PAROXETINE HCL [Suspect]
     Indication: DEPRESSION
     Dosage: 10 MG; QD; 20 MG; QD; 4 MG
     Dates: start: 19991216, end: 20000221
  2. PAROXETINE HCL [Suspect]
     Indication: DEPRESSION
     Dosage: 10 MG; QD; 20 MG; QD; 4 MG
     Dates: start: 19991001
  3. ESCITALOPRAM [Concomitant]
  4. FLUVOXAMINE MALEATE [Concomitant]

REACTIONS (29)
  - ABNORMAL BEHAVIOUR [None]
  - AGGRESSION [None]
  - AGITATION [None]
  - DERMATITIS ARTEFACTA [None]
  - DIARRHOEA [None]
  - DISTURBANCE IN ATTENTION [None]
  - DIZZINESS [None]
  - DRUG WITHDRAWAL SYNDROME [None]
  - FATIGUE [None]
  - FEELING OF DESPAIR [None]
  - HEAD BANGING [None]
  - HEADACHE [None]
  - HYPERHIDROSIS [None]
  - INFLUENZA [None]
  - INSOMNIA [None]
  - INTENTIONAL SELF-INJURY [None]
  - LETHARGY [None]
  - MEMORY IMPAIRMENT [None]
  - NAUSEA [None]
  - NIGHTMARE [None]
  - PARAESTHESIA [None]
  - RASH PRURITIC [None]
  - SELF-INJURIOUS IDEATION [None]
  - SOMNOLENCE [None]
  - SUICIDAL IDEATION [None]
  - TOOTHACHE [None]
  - TREMOR [None]
  - VERTIGO [None]
  - VOMITING [None]
